FAERS Safety Report 6713275-0 (Version None)
Quarter: 2010Q2

REPORT INFORMATION
  Report Type: 
  Country: None (occurrence: None)
  Receive Date: 20100506
  Receipt Date: 20100426
  Transmission Date: 20101027
  Serious: Yes (Other)
  Sender: FDA-Public Use
  Company Number: DE-BAYER-201023965GPV

PATIENT
  Sex: Female

DRUGS (1)
  1. MABCAMPATH [Suspect]
     Indication: DRUG USE FOR UNKNOWN INDICATION
     Dates: end: 20100101

REACTIONS (1)
  - BONE MARROW NECROSIS [None]
